FAERS Safety Report 6786309-5 (Version None)
Quarter: 2010Q2

REPORT INFORMATION
  Report Type: 
  Country: None (occurrence: None)
  Receive Date: 20100623
  Receipt Date: 20100621
  Transmission Date: 20101027
  Serious: Yes (Death)
  Sender: FDA-Public Use
  Company Number: GXKR2010DE06800

PATIENT
  Sex: Female
  Weight: 60 kg

DRUGS (6)
  1. THIAMAZOLE (NGX) [Suspect]
     Indication: HYPERTHYROIDISM
     Dosage: 5 MG, UNK
     Route: 048
  2. METAMIZOLE (NGX) [Suspect]
     Indication: PAIN
     Dosage: 30 DRP, TID
     Route: 048
  3. FENTANYL [Concomitant]
     Indication: PAIN
     Dosage: 50 UG/HR, UNK
     Route: 062
  4. ACETYLSALICYLIC ACID [Concomitant]
     Indication: CORONARY ARTERY DISEASE
     Dosage: 300 MG, QD
     Route: 048
  5. PENTAERYTHRITOL TETRANITRATE [Concomitant]
     Indication: CORONARY ARTERY DISEASE
     Route: 048
  6. HYDROCHLOROTHIAZIDE [Concomitant]
     Dosage: 25 MG, UNK
     Route: 048
     Dates: start: 20100401

REACTIONS (6)
  - ABDOMINAL PAIN [None]
  - BLOOD CREATININE INCREASED [None]
  - CONSTIPATION [None]
  - HEPATIC ENZYME INCREASED [None]
  - PANCYTOPENIA [None]
  - SEPSIS [None]
